FAERS Safety Report 9777130 (Version 2)
Quarter: 2013Q4

REPORT INFORMATION
  Report Type: Report from Study
  Country: TW (occurrence: TW)
  Receive Date: 20131221
  Receipt Date: 20131230
  Transmission Date: 20140711
  Serious: Yes (Hospitalization, Other)
  Sender: FDA-Public Use
  Company Number: TW-ROCHE-1321937

PATIENT
  Age: 70 Year
  Sex: Female
  Weight: 60 kg

DRUGS (1)
  1. RANIBIZUMAB [Suspect]
     Indication: DIABETIC RETINAL OEDEMA
     Dosage: LAST DOSE RECEIVED ON 19/JUL/2013
     Route: 050
     Dates: start: 20130503

REACTIONS (2)
  - Acute myocardial infarction [Recovering/Resolving]
  - Pulmonary vein occlusion [Recovering/Resolving]
